FAERS Safety Report 12241059 (Version 1)
Quarter: 2016Q2

REPORT INFORMATION
  Report Type: Spontaneous
  Country: US (occurrence: None)
  Receive Date: 20160405
  Receipt Date: 20160405
  Transmission Date: 20160815
  Serious: Yes (Hospitalization, Other)
  Sender: FDA-Public Use
  Company Number: None

PATIENT
  Age: 66 Year
  Sex: Male
  Weight: 86.18 kg

DRUGS (3)
  1. REPATHA [Suspect]
     Active Substance: EVOLOCUMAB
     Indication: LOW DENSITY LIPOPROTEIN INCREASED
     Dosage: 1 INJECTION IN THE MORNING GIVEN INTO/UNDER THE SKIN
     Route: 058
     Dates: start: 20151115, end: 20160115
  2. PLAVIX [Concomitant]
     Active Substance: CLOPIDOGREL BISULFATE
  3. ASPIN [Concomitant]

REACTIONS (1)
  - Vascular stent occlusion [None]

NARRATIVE: CASE EVENT DATE: 20160115
